FAERS Safety Report 5428284-1 (Version None)
Quarter: 2007Q3

REPORT INFORMATION
  Report Type: 
  Country: None (occurrence: None)
  Receive Date: 20070731
  Receipt Date: 20070424
  Transmission Date: 20080115
  Serious: No
  Sender: FDA-Public Use
  Company Number: US200704005613

PATIENT
  Age: 73 Year
  Sex: Female
  Weight: 105.7 kg

DRUGS (8)
  1. BYETTA [Suspect]
     Indication: TYPE 2 DIABETES MELLITUS
     Dosage: 5 UG, 2/D, SUBCUTANEOUS; 10 UG, 2/D, SUBCUTANEOUS; 5 UG, 2/D, SUBCUTANEOUS
     Route: 058
     Dates: start: 20060101, end: 20060101
  2. BYETTA [Suspect]
     Indication: TYPE 2 DIABETES MELLITUS
     Dosage: 5 UG, 2/D, SUBCUTANEOUS; 10 UG, 2/D, SUBCUTANEOUS; 5 UG, 2/D, SUBCUTANEOUS
     Route: 058
     Dates: start: 20060101, end: 20060101
  3. BYETTA [Suspect]
     Indication: TYPE 2 DIABETES MELLITUS
     Dosage: 5 UG, 2/D, SUBCUTANEOUS; 10 UG, 2/D, SUBCUTANEOUS; 5 UG, 2/D, SUBCUTANEOUS
     Route: 058
     Dates: start: 20070417
  4. EXENATIDE PEN, DISPOSABLE DEVICE (EXENATIDE PEN) [Concomitant]
  5. METFORMIN HCL [Concomitant]
  6. GLIPIZIDE [Concomitant]
  7. AVANDIA [Concomitant]
  8. DRUG USED IN DIABETES [Concomitant]

REACTIONS (7)
  - DECREASED APPETITE [None]
  - HYPERCHLORHYDRIA [None]
  - NAUSEA [None]
  - RETCHING [None]
  - STOMACH DISCOMFORT [None]
  - VOMITING [None]
  - WEIGHT DECREASED [None]
